FAERS Safety Report 8182957-9 (Version None)
Quarter: 2012Q1

REPORT INFORMATION
  Report Type: 
  Country: None (occurrence: None)
  Receive Date: 20120305
  Receipt Date: 20120123
  Transmission Date: 20120608
  Serious: No
  Sender: FDA-Public Use
  Company Number: US-BRISTOL-MYERS SQUIBB COMPANY-16363962

PATIENT
  Age: 57 Year
  Sex: Female
  Weight: 168 kg

DRUGS (3)
  1. KOMBIGLYZE XR [Suspect]
     Dosage: 1 DF: KOMBIGLYZE XR 5/1000
  2. ONGLYZA [Suspect]
  3. METFORMIN HCL [Suspect]

REACTIONS (2)
  - ABDOMINAL DISCOMFORT [None]
  - DRUG INEFFECTIVE [None]
